FAERS Safety Report 8080617-6 (Version None)
Quarter: 2012Q1

REPORT INFORMATION
  Report Type: 
  Country: None (occurrence: None)
  Receive Date: 20120130
  Receipt Date: 20120123
  Transmission Date: 20120608
  Serious: No
  Sender: FDA-Public Use
  Company Number: US-B.I. PHARMACEUTICALS,INC./RIDGEFIELD-2012-BP-01436BP

PATIENT
  Sex: Female

DRUGS (2)
  1. MOBIC [Suspect]
     Dates: start: 20110601
  2. CELEBREX [Concomitant]

REACTIONS (1)
  - EYE SWELLING [None]
